FAERS Safety Report 9169868 (Version 1)
Quarter: 2013Q1

REPORT INFORMATION
  Report Type: Spontaneous
  Country: US (occurrence: US)
  Receive Date: 20130319
  Receipt Date: 20130319
  Transmission Date: 20140127
  Serious: No
  Sender: FDA-Public Use
  Company Number: US-009507513-1303USA005241

PATIENT
  Sex: Female

DRUGS (1)
  1. AZASITE [Suspect]
     Dosage: 1 DROP IN THE LEFT EYE, BID
     Route: 047
     Dates: start: 20130307

REACTIONS (1)
  - Eye disorder [Unknown]
